FAERS Safety Report 23252732 (Version 1)
Quarter: 2023Q4

REPORT INFORMATION
  Report Type: Spontaneous
  Country: US (occurrence: None)
  Receive Date: 20231201
  Receipt Date: 20231201
  Transmission Date: 20240109
  Serious: Yes (Hospitalization)
  Sender: FDA-Public Use
  Company Number: None

PATIENT
  Age: 68 Year
  Sex: Female

DRUGS (1)
  1. SILDENAFIL CITRATE [Suspect]
     Active Substance: SILDENAFIL CITRATE
     Indication: Pulmonary arterial hypertension
     Dosage: 20MG  TID PO
     Route: 048
     Dates: start: 202112

REACTIONS (3)
  - Pneumonia [None]
  - Therapy cessation [None]
  - Treatment noncompliance [None]

NARRATIVE: CASE EVENT DATE: 20231110
